FAERS Safety Report 19502021 (Version 1)
Quarter: 2021Q3

REPORT INFORMATION
  Report Type: Report from Study
  Country: DE (occurrence: DE)
  Receive Date: 20210707
  Receipt Date: 20210707
  Transmission Date: 20211014
  Serious: Yes (Hospitalization)
  Sender: FDA-Public Use
  Company Number: PHHO2016DE009118

PATIENT
  Sex: Female
  Weight: 65 kg

DRUGS (2)
  1. RAD 666 / RAD 001A [Suspect]
     Active Substance: EVEROLIMUS
     Indication: BREAST CANCER
     Dosage: 10 MG, PER OS
     Route: 048
     Dates: start: 20150630, end: 20160721
  2. LETROZOLE. [Suspect]
     Active Substance: LETROZOLE
     Indication: BREAST CANCER
     Dosage: 2.5 MG, PER OS
     Route: 048
     Dates: start: 20150630, end: 20160721

REACTIONS (3)
  - Anaemia [Recovered/Resolved]
  - Dehydration [Recovered/Resolved]
  - Urinary bladder haemorrhage [Recovered/Resolved]

NARRATIVE: CASE EVENT DATE: 20160620
